FAERS Safety Report 19270397 (Version 1)
Quarter: 2021Q2

REPORT INFORMATION
  Report Type: Spontaneous
  Country: US (occurrence: US)
  Receive Date: 20210518
  Receipt Date: 20210518
  Transmission Date: 20210717
  Serious: No
  Sender: FDA-Public Use
  Company Number: US-TEVA-2021-US-1907325

PATIENT
  Sex: Female

DRUGS (3)
  1. LOSARTAN POTASSIUM TEVA [Suspect]
     Active Substance: LOSARTAN POTASSIUM
     Indication: PRODUCT USED FOR UNKNOWN INDICATION
     Route: 065
  2. ATENOLOL TEVA [Suspect]
     Active Substance: ATENOLOL
     Dosage: IMPRINT Z OR 2 AND 1
     Route: 065
  3. LOSARTAN POTASSIUM AUROBINDO [Suspect]
     Active Substance: LOSARTAN POTASSIUM
     Route: 065

REACTIONS (1)
  - Illness [Unknown]
